FAERS Safety Report 22170627 (Version 2)
Quarter: 2023Q2

REPORT INFORMATION
  Report Type: Report from Study
  Country: US (occurrence: US)
  Receive Date: 20230404
  Receipt Date: 20230612
  Transmission Date: 20230722
  Serious: Yes (Hospitalization, Other)
  Sender: FDA-Public Use
  Company Number: US-002147023-NVSC2023US071801

PATIENT

DRUGS (1)
  1. KESIMPTA [Suspect]
     Active Substance: OFATUMUMAB
     Indication: Relapsing multiple sclerosis
     Dosage: UNK, QMO
     Route: 058

REACTIONS (13)
  - Pneumonia respiratory syncytial viral [Unknown]
  - Dyspnoea [Unknown]
  - Thoracic vertebral fracture [Unknown]
  - Lumbar vertebral fracture [Unknown]
  - Facial bones fracture [Unknown]
  - Ulna fracture [Unknown]
  - Back pain [Not Recovered/Not Resolved]
  - Fall [Unknown]
  - Muscle spasms [Unknown]
  - Tremor [Unknown]
  - Fatigue [Unknown]
  - Weight decreased [Recovering/Resolving]
  - Somnambulism [Unknown]
